FAERS Safety Report 7366274-2 (Version None)
Quarter: 2011Q1

REPORT INFORMATION
  Report Type: 
  Country: None (occurrence: None)
  Receive Date: 20110225
  Receipt Date: 20101108
  Transmission Date: 20110831
  Serious: Yes (Other)
  Sender: FDA-Public Use
  Company Number: 318082

PATIENT
  Age: 28 Year
  Sex: Male
  Weight: 87.5 kg

DRUGS (6)
  1. NOVOLOG [Concomitant]
  2. VICTOZA [Suspect]
     Indication: TYPE 1 DIABETES MELLITUS
     Dosage: 0.6 MG, QD, SUBCUTANEOUS, 1.2 MG, QD, SUBCUTANEOUS
     Route: 058
     Dates: start: 20101027
  3. VICTOZA [Suspect]
     Indication: TYPE 1 DIABETES MELLITUS
     Dosage: 0.6 MG, QD, SUBCUTANEOUS, 1.2 MG, QD, SUBCUTANEOUS
     Route: 058
     Dates: end: 20101107
  4. LISINOPRIL [Concomitant]
  5. LEVEMIR [Concomitant]
  6. DEPAKOTE [Concomitant]

REACTIONS (5)
  - DIARRHOEA [None]
  - NAUSEA [None]
  - VOMITING [None]
  - HYPOGLYCAEMIA [None]
  - PANCREATITIS [None]
